FAERS Safety Report 9590529 (Version 1)
Quarter: 2013Q4

REPORT INFORMATION
  Report Type: Spontaneous
  Country: US (occurrence: US)
  Receive Date: 20131003
  Receipt Date: 20131003
  Transmission Date: 20140711
  Serious: No
  Sender: FDA-Public Use
  Company Number: US-AMGEN-USASP2012077938

PATIENT
  Age: 56 Year
  Sex: Male

DRUGS (4)
  1. ENBREL [Suspect]
     Indication: RHEUMATOID ARTHRITIS
     Dosage: 50 MG, QWK
     Dates: start: 20120331, end: 201210
  2. METHOTREXATE [Concomitant]
     Dosage: 2.5 MG, 4 TABS WEEKLY
     Dates: start: 2011
  3. PREDNISONE [Concomitant]
     Dosage: 3.5 MG, DAILY
     Dates: start: 2011
  4. ORENCIA [Concomitant]
     Dosage: UNK

REACTIONS (2)
  - Pain [Not Recovered/Not Resolved]
  - Asthenia [Not Recovered/Not Resolved]
